FAERS Safety Report 9911754 (Version 1)
Quarter: 2014Q1

REPORT INFORMATION
  Report Type: Other
  Country: IR (occurrence: IR)
  Receive Date: 20140219
  Receipt Date: 20140219
  Transmission Date: 20141002
  Serious: Yes (Other)
  Sender: FDA-Public Use
  Company Number: IR-RB-063638-14

PATIENT
  Sex: 0

DRUGS (1)
  1. TEMGESIC UNSPECIFIED [Suspect]
     Indication: PRODUCT USED FOR UNKNOWN INDICATION
     Dosage: DOSING DETAILS UNKNOWN
     Route: 042

REACTIONS (3)
  - Substance abuse [Unknown]
  - Osteonecrosis [Unknown]
  - Condition aggravated [Unknown]
